FAERS Safety Report 4960993-0 (Version None)
Quarter: 2006Q2

REPORT INFORMATION
  Report Type: 
  Country: None (occurrence: None)
  Receive Date: 20060403
  Receipt Date: 20030708
  Transmission Date: 20061013
  Serious: Yes (Other)
  Sender: FDA-Public Use
  Company Number: RU-AVENTIS-200316812GDDC

PATIENT
  Age: 45 Year
  Sex: Male
  Weight: 75 kg

DRUGS (7)
  1. UNFRACTIONATED HEPARIN [Suspect]
     Indication: MYOCARDIAL INFARCTION
     Dosage: DOSE: ENOXAPARIN/PLACEBO 30 MG IV
     Route: 042
     Dates: start: 20030622, end: 20030622
  2. UNFRACTIONATED HEPARIN [Suspect]
     Dosage: DOSE: HEPARIN OR PLACEBO 4000 U
     Route: 042
     Dates: start: 20030622, end: 20030622
  3. UNFRACTIONATED HEPARIN [Suspect]
     Dosage: DOSE: ENOXAPARIN OR PLACEBO 152 MG
     Route: 058
     Dates: start: 20030622, end: 20030629
  4. UNFRACTIONATED HEPARIN [Suspect]
     Dosage: DOSE: HEPARIN OR PLACEBO 24000 U/HOUR
     Route: 042
     Dates: start: 20030622, end: 20030624
  5. ASPIRIN [Suspect]
     Indication: MYOCARDIAL INFARCTION
     Route: 048
     Dates: start: 20030622
  6. ACTIVASE [Suspect]
     Indication: MYOCARDIAL INFARCTION
     Route: 042
     Dates: start: 20030622, end: 20030622
  7. COUMADIN [Concomitant]
     Route: 048
     Dates: start: 20030701

REACTIONS (2)
  - CARDIAC ARREST [None]
  - INTRACARDIAC THROMBUS [None]
